FAERS Safety Report 8799283 (Version 1)
Quarter: 2012Q4

REPORT INFORMATION
  Report Type: 
  Country: US (occurrence: US)
  Receive Date: 20120919
  Receipt Date: 20120919
  Transmission Date: 20130627
  Serious: Yes (Other)
  Sender: FDA-Public Use
  Company Number: US-SANOFI-AVENTIS-2012SA066758

PATIENT
  Age: 54 Year
  Sex: Female

DRUGS (12)
  1. LASIX [Suspect]
     Indication: FLUID RETENTION
     Route: 065
  2. LYRICA [Suspect]
     Indication: PARAESTHESIA
     Route: 065
  3. LYRICA [Suspect]
     Indication: PAIN IN EXTREMITY
     Route: 065
  4. NOVOLOG [Suspect]
     Indication: DIABETES
     Route: 065
  5. PREDNISONE [Suspect]
     Indication: PULMONARY EDEMA
     Route: 065
  6. BUDESONIDE/FORMOTEROL [Suspect]
     Indication: PULMONARY EDEMA
     Route: 065
  7. ALBUTEROL SULFATE [Suspect]
     Indication: PULMONARY EDEMA
     Route: 065
  8. AMLODIPINE BESILATEATORVASTATIN CALCIUM [Suspect]
     Indication: BLOOD PRESSURE
     Route: 065
  9. AMLODIPINE BESYLATE/ATORVASTATIN CALCIUM [Suspect]
     Indication: CARDIAC DISORDER NOS
     Route: 065
  10. ZEMPLAR [Suspect]
     Route: 065
  11. POTASSIUM [Suspect]
     Indication: NUTRITIONAL SUPPLEMENT
     Route: 065
  12. ASPIRIN [Suspect]
     Indication: THROMBOSIS PROPHYLAXIS
     Route: 065

REACTIONS (7)
  - Pulmonary fibrosis [Unknown]
  - Pulmonary oedema [Unknown]
  - Abasia [Unknown]
  - Gait disturbance [Unknown]
  - Feeling hot [Unknown]
  - Muscle spasms [Unknown]
  - Pruritus [Unknown]
